FAERS Safety Report 17459236 (Version 2)
Quarter: 2020Q1

REPORT INFORMATION
  Report Type: Spontaneous
  Country: RO (occurrence: RO)
  Receive Date: 20200226
  Receipt Date: 20200306
  Transmission Date: 20200409
  Serious: Yes (Hospitalization, Other)
  Sender: FDA-Public Use
  Company Number: NVSC2020RO052500

PATIENT
  Age: 62 Year
  Sex: Female

DRUGS (4)
  1. AMIODARONE HYDROCHLORIDE. [Suspect]
     Active Substance: AMIODARONE HYDROCHLORIDE
     Indication: HYPERTENSION
     Dosage: 200 MG, QD
     Route: 065
  2. LOKREN [Concomitant]
     Active Substance: BETAXOLOL HYDROCHLORIDE
     Indication: HYPERTENSION
     Dosage: 20 MG, QD
     Route: 065
  3. PRESTARIUM A [Concomitant]
     Active Substance: PERINDOPRIL ARGININE
     Indication: VENTRICULAR ARRHYTHMIA
     Dosage: 5 MG, QD
     Route: 065
  4. LOKREN [Concomitant]
     Active Substance: BETAXOLOL HYDROCHLORIDE
     Indication: VENTRICULAR ARRHYTHMIA
     Route: 065

REACTIONS (18)
  - Diastolic dysfunction [Recovering/Resolving]
  - Interventricular septum rupture [Recovering/Resolving]
  - Pyrexia [Recovering/Resolving]
  - Leukocytosis [Recovering/Resolving]
  - Dyspnoea [Recovering/Resolving]
  - Cough [Recovering/Resolving]
  - Pulmonary hypertension [Recovering/Resolving]
  - Respiratory failure [Recovering/Resolving]
  - Rales [Recovering/Resolving]
  - Pulmonary fibrosis [Recovering/Resolving]
  - Polycythaemia [Recovering/Resolving]
  - Pulmonary embolism [Recovering/Resolving]
  - Myocardial necrosis marker increased [Recovering/Resolving]
  - Pulmonary toxicity [Recovering/Resolving]
  - Left ventricular hypertrophy [Recovering/Resolving]
  - General physical condition abnormal [Recovering/Resolving]
  - Hypoxia [Recovering/Resolving]
  - Ventricular enlargement [Recovering/Resolving]
